FAERS Safety Report 22599810 (Version 1)
Quarter: 2023Q2

REPORT INFORMATION
  Report Type: Spontaneous
  Country: KR (occurrence: KR)
  Receive Date: 20230614
  Receipt Date: 20230614
  Transmission Date: 20230722
  Serious: Yes (Hospitalization, Other)
  Sender: FDA-Public Use
  Company Number: KR-PFIZER INC-202300216127

PATIENT
  Age: 65 Year
  Sex: Male

DRUGS (1)
  1. IRINOTECAN HYDROCHLORIDE [Suspect]
     Active Substance: IRINOTECAN HYDROCHLORIDE
     Indication: Metastatic gastric cancer
     Dosage: 180 MG/M2, CYCLIC
     Dates: start: 202008, end: 2020

REACTIONS (2)
  - Febrile neutropenia [Unknown]
  - Enterocolitis [Unknown]

NARRATIVE: CASE EVENT DATE: 20200101
